FAERS Safety Report 24621180 (Version 2)
Quarter: 2025Q1

REPORT INFORMATION
  Report Type: Spontaneous
  Country: US (occurrence: US)
  Receive Date: 20241114
  Receipt Date: 20250110
  Transmission Date: 20250408
  Serious: No
  Sender: JOHNSON AND JOHNSON
  Company Number: US-JNJFOC-20241113617

PATIENT
  Age: 29 Year
  Sex: Female

DRUGS (1)
  1. TREMFYA [Suspect]
     Active Substance: GUSELKUMAB
     Indication: Psoriasis
     Route: 065
     Dates: start: 2023

REACTIONS (2)
  - Inappropriate schedule of product administration [Unknown]
  - Device deployment issue [Unknown]

NARRATIVE: CASE EVENT DATE: 20241101
